FAERS Safety Report 7051686-7 (Version None)
Quarter: 2010Q4

REPORT INFORMATION
  Report Type: 
  Country: None (occurrence: None)
  Receive Date: 20101018
  Receipt Date: 20101018
  Transmission Date: 20110411
  Serious: Yes (Death, Life-Threatening, Hospitalization, Other)
  Sender: FDA-Public Use
  Company Number: None

PATIENT
  Age: 84 Year
  Sex: Female
  Weight: 55.3388 kg

DRUGS (1)
  1. AVANDIA [Suspect]
     Dates: start: 20070401, end: 20100918

REACTIONS (1)
  - MYOCARDIAL INFARCTION [None]
